FAERS Safety Report 13185512 (Version 22)
Quarter: 2018Q2

REPORT INFORMATION
  Report Type: Spontaneous
  Country: US (occurrence: JP)
  Receive Date: 20170203
  Receipt Date: 20180501
  Transmission Date: 20180711
  Serious: Yes (Other)
  Sender: FDA-Public Use
  Company Number: US-SUNOVION-2017SUN000376

PATIENT
  Age: 45 Year
  Sex: Male

DRUGS (12)
  1. CALONAL [Concomitant]
     Active Substance: ACETAMINOPHEN
  2. INDACATEROL AND GLYCOPYRROLATE [Suspect]
     Active Substance: GLYCOPYRROLATE\INDACATEROL MALEATE
     Indication: EMPHYSEMA
     Dosage: 1 DF (GLYCOPYRRONIUM 50UG/INDACATEROL 110 UG), BID
     Route: 055
     Dates: start: 20171004
  3. DICLOFENAC SODIUM. [Suspect]
     Active Substance: DICLOFENAC SODIUM
     Dosage: UNK
     Route: 048
  4. INDACATEROL [Suspect]
     Active Substance: INDACATEROL
     Indication: EMPHYSEMA
     Dosage: UNK, UNK (REGIMEN #2)
     Route: 055
     Dates: start: 20161117
  5. TAMIFLU [Suspect]
     Active Substance: OSELTAMIVIR PHOSPHATE
     Indication: INFLUENZA
     Dosage: UNK
  6. INDACATEROL [Suspect]
     Active Substance: INDACATEROL
     Indication: CHRONIC OBSTRUCTIVE PULMONARY DISEASE
     Dosage: 150 ?G, UNK (REGIMEN #1)
     Route: 055
  7. DICLOFENAC SODIUM. [Suspect]
     Active Substance: DICLOFENAC SODIUM
     Indication: NECK PAIN
     Dosage: UNK
     Route: 048
  8. DICLOFENAC SODIUM. [Suspect]
     Active Substance: DICLOFENAC SODIUM
     Indication: PAIN IN JAW
     Dosage: 25 MG, UNK
     Route: 048
  9. MEPTIN [Concomitant]
     Active Substance: PROCATEROL HYDROCHLORIDE
     Dosage: UNK
  10. INDACATEROL AND GLYCOPYRROLATE [Suspect]
     Active Substance: GLYCOPYRROLATE\INDACATEROL MALEATE
     Indication: CHRONIC OBSTRUCTIVE PULMONARY DISEASE
     Dosage: 1 DF (GLYCOPYRRONIUM 50UG/INDACATEROL 110 UG), UNK
     Route: 055
  11. DICLOFENAC SODIUM. [Suspect]
     Active Substance: DICLOFENAC SODIUM
     Indication: HEADACHE
     Dosage: UNK
     Route: 048
     Dates: start: 20161122
  12. DEPAKENE [Concomitant]
     Active Substance: VALPROIC ACID

REACTIONS (65)
  - Urinary retention [Unknown]
  - Neck pain [Recovered/Resolved]
  - Chapped lips [Not Recovered/Not Resolved]
  - Pain in extremity [Unknown]
  - Glycosylated haemoglobin increased [Unknown]
  - Gait disturbance [Unknown]
  - Limb injury [Unknown]
  - Throat irritation [Unknown]
  - Biliary colic [Unknown]
  - Chest pain [Unknown]
  - Road traffic accident [Unknown]
  - Dyspnoea [Unknown]
  - Product packaging issue [Unknown]
  - Blood pressure increased [Not Recovered/Not Resolved]
  - Blood creatinine increased [Unknown]
  - Hypoaesthesia [Unknown]
  - White blood cell count increased [Unknown]
  - Blood urea decreased [Unknown]
  - Chest discomfort [Unknown]
  - Blood triglycerides increased [Unknown]
  - Blood creatinine decreased [Unknown]
  - Facial pain [Unknown]
  - Tongue disorder [Unknown]
  - Influenza [Unknown]
  - Depression [Unknown]
  - Abnormal behaviour [Unknown]
  - Bronchitis [Unknown]
  - Cholelithiasis [Unknown]
  - Blood creatine increased [Recovering/Resolving]
  - Erectile dysfunction [Unknown]
  - Product use in unapproved indication [Not Recovered/Not Resolved]
  - Renal impairment [Recovered/Resolved]
  - Skin papilloma [Unknown]
  - Productive cough [Unknown]
  - Musculoskeletal pain [Unknown]
  - Weight increased [Unknown]
  - Enterocolitis [Not Recovered/Not Resolved]
  - Pain in jaw [Unknown]
  - Dysphonia [Recovered/Resolved]
  - Aspartate aminotransferase increased [Unknown]
  - Drug ineffective [Unknown]
  - Myalgia [Unknown]
  - Pyrexia [Unknown]
  - Cough [Recovered/Resolved]
  - Headache [Recovered/Resolved]
  - Disease progression [Unknown]
  - Lymphadenopathy [Unknown]
  - Low density lipoprotein increased [Unknown]
  - Emphysema [Unknown]
  - Diarrhoea [Unknown]
  - Eosinophil count increased [Unknown]
  - Nasal discomfort [Unknown]
  - Jaw disorder [Unknown]
  - Blood glucose increased [Unknown]
  - Spinal osteoarthritis [Unknown]
  - Arthralgia [Unknown]
  - Product use issue [Unknown]
  - Hepatic function abnormal [Unknown]
  - Blood potassium increased [Unknown]
  - Rhinalgia [Recovered/Resolved]
  - Abdominal pain upper [Unknown]
  - Gamma-glutamyltransferase increased [Unknown]
  - Insomnia [Unknown]
  - Urine output decreased [Unknown]
  - Inappropriate schedule of drug administration [Unknown]

NARRATIVE: CASE EVENT DATE: 20161116
